FAERS Safety Report 6942693-0 (Version None)
Quarter: 2010Q3

REPORT INFORMATION
  Report Type: 
  Country: None (occurrence: None)
  Receive Date: 20100826
  Receipt Date: 20100713
  Transmission Date: 20110219
  Serious: Yes (Death, Life-Threatening, Other)
  Sender: FDA-Public Use
  Company Number: US-BAXTER-2010BH001904

PATIENT
  Age: 75 Year
  Sex: Male
  Weight: 82 kg

DRUGS (49)
  1. HEPARIN SODIUM INJECTION [Suspect]
     Indication: ANGIOPLASTY
     Route: 042
     Dates: start: 20080107, end: 20080107
  2. HEPARIN SODIUM INJECTION [Suspect]
     Indication: CORONARY ARTERIAL STENT INSERTION
     Route: 042
     Dates: start: 20080107, end: 20080107
  3. HEPARIN SODIUM INJECTION [Suspect]
     Indication: CATHETERISATION CARDIAC
     Route: 042
     Dates: start: 20080107, end: 20080107
  4. HEPARIN SODIUM INJECTION [Suspect]
     Route: 010
     Dates: start: 20080112, end: 20080112
  5. HEPARIN SODIUM INJECTION [Suspect]
     Route: 010
     Dates: start: 20080112, end: 20080112
  6. HEPARIN SODIUM INJECTION [Suspect]
     Route: 010
     Dates: start: 20080112, end: 20080112
  7. HEPARIN SODIUM INJECTION [Suspect]
     Route: 042
     Dates: start: 20080109, end: 20080109
  8. HEPARIN SODIUM INJECTION [Suspect]
     Route: 042
     Dates: start: 20080109, end: 20080109
  9. HEPARIN SODIUM INJECTION [Suspect]
     Route: 042
     Dates: start: 20080109, end: 20080109
  10. HEPARIN SODIUM INJECTION [Suspect]
     Route: 065
     Dates: start: 20080120, end: 20080121
  11. HEPARIN SODIUM INJECTION [Suspect]
     Route: 065
     Dates: start: 20080120, end: 20080121
  12. HEPARIN SODIUM INJECTION [Suspect]
     Route: 065
     Dates: start: 20080120, end: 20080121
  13. HEPARIN SODIUM INJECTION [Suspect]
     Route: 058
     Dates: start: 20080124, end: 20080124
  14. HEPARIN SODIUM INJECTION [Suspect]
     Route: 058
     Dates: start: 20080124, end: 20080124
  15. HEPARIN SODIUM INJECTION [Suspect]
     Route: 058
     Dates: start: 20080124, end: 20080124
  16. HEPARIN SODIUM INJECTION [Suspect]
     Indication: THROMBOSIS PROPHYLAXIS
     Route: 042
     Dates: start: 20080105, end: 20080109
  17. NITRO-DUR [Concomitant]
     Indication: PRODUCT USED FOR UNKNOWN INDICATION
     Route: 058
  18. ZAROXOLYN [Concomitant]
     Indication: PRODUCT USED FOR UNKNOWN INDICATION
     Route: 065
  19. IMIPRAMINE [Concomitant]
     Indication: PRODUCT USED FOR UNKNOWN INDICATION
     Route: 065
  20. DEMADEX [Concomitant]
     Indication: PRODUCT USED FOR UNKNOWN INDICATION
     Route: 065
  21. TOPROL-XL [Concomitant]
     Indication: PRODUCT USED FOR UNKNOWN INDICATION
     Route: 065
  22. FERREX [Concomitant]
     Indication: PRODUCT USED FOR UNKNOWN INDICATION
     Route: 065
  23. COZAAR [Concomitant]
     Indication: PRODUCT USED FOR UNKNOWN INDICATION
     Route: 065
  24. VITAMIN B COMPLEX WITH C [Concomitant]
     Indication: PRODUCT USED FOR UNKNOWN INDICATION
     Route: 048
  25. NITROGLYCERIN [Concomitant]
     Indication: PRODUCT USED FOR UNKNOWN INDICATION
     Route: 062
  26. WARFARIN SODIUM [Concomitant]
     Indication: PRODUCT USED FOR UNKNOWN INDICATION
     Route: 065
  27. FOSRENOL [Concomitant]
     Indication: PRODUCT USED FOR UNKNOWN INDICATION
     Route: 065
  28. ASPIRIN [Concomitant]
     Indication: PRODUCT USED FOR UNKNOWN INDICATION
     Route: 065
  29. PRAMIPEXOLE [Concomitant]
     Indication: PRODUCT USED FOR UNKNOWN INDICATION
     Route: 065
  30. METOLAZONE [Concomitant]
     Indication: PRODUCT USED FOR UNKNOWN INDICATION
     Route: 065
  31. METOPROLOL [Concomitant]
     Indication: PRODUCT USED FOR UNKNOWN INDICATION
     Route: 065
  32. DARVOCET-N 100 [Concomitant]
     Indication: PRODUCT USED FOR UNKNOWN INDICATION
     Route: 065
  33. PLAVIX [Concomitant]
     Indication: PRODUCT USED FOR UNKNOWN INDICATION
     Route: 065
  34. DEMADEX [Concomitant]
     Route: 065
  35. NITROGLYCERIN [Concomitant]
     Indication: CHEST PAIN
     Route: 060
  36. AMBIEN [Concomitant]
     Indication: PRODUCT USED FOR UNKNOWN INDICATION
     Route: 065
  37. ZOFRAN [Concomitant]
     Indication: NAUSEA
     Route: 065
  38. IRON [Concomitant]
     Indication: PRODUCT USED FOR UNKNOWN INDICATION
     Route: 065
  39. MAALOX                                  /USA/ [Concomitant]
     Indication: PRODUCT USED FOR UNKNOWN INDICATION
     Route: 065
  40. MILK OF MAGNESIA TAB [Concomitant]
     Indication: PRODUCT USED FOR UNKNOWN INDICATION
     Route: 065
  41. DIPHENHYDRAMINE [Concomitant]
     Indication: PRODUCT USED FOR UNKNOWN INDICATION
     Route: 065
  42. ACETAMINOPHEN [Concomitant]
     Indication: PRODUCT USED FOR UNKNOWN INDICATION
  43. GUAIFENESIN [Concomitant]
     Indication: PRODUCT USED FOR UNKNOWN INDICATION
     Route: 048
  44. FOLIC ACID [Concomitant]
     Indication: PRODUCT USED FOR UNKNOWN INDICATION
     Route: 048
  45. COMBINATIONS OF VITAMINS [Concomitant]
     Indication: PRODUCT USED FOR UNKNOWN INDICATION
     Route: 048
  46. AUGMENTIN '125' [Concomitant]
     Indication: PRODUCT USED FOR UNKNOWN INDICATION
     Route: 048
  47. FENTANYL CITRATE [Concomitant]
     Indication: PRODUCT USED FOR UNKNOWN INDICATION
     Route: 065
  48. ANCEF [Concomitant]
     Indication: PRODUCT USED FOR UNKNOWN INDICATION
     Route: 065
  49. CEFEPIME [Concomitant]
     Indication: PRODUCT USED FOR UNKNOWN INDICATION
     Route: 065
     Dates: start: 20080123, end: 20080123

REACTIONS (15)
  - ACUTE MYOCARDIAL INFARCTION [None]
  - CARDIAC ARREST [None]
  - CORONARY ARTERY DISEASE [None]
  - COUGH [None]
  - HEPARIN-INDUCED THROMBOCYTOPENIA [None]
  - HYPOTENSION [None]
  - ISCHAEMIC HEPATITIS [None]
  - LEUKOCYTOSIS [None]
  - METABOLIC ENCEPHALOPATHY [None]
  - NASAL CONGESTION [None]
  - PULMONARY OEDEMA [None]
  - RENAL FAILURE CHRONIC [None]
  - RESPIRATORY FAILURE [None]
  - SEPSIS [None]
  - SEPTIC SHOCK [None]
